FAERS Safety Report 5063951-3 (Version None)
Quarter: 2006Q3

REPORT INFORMATION
  Report Type: 
  Country: None (occurrence: None)
  Receive Date: 20060727
  Receipt Date: 20060720
  Transmission Date: 20061208
  Serious: Yes (Hospitalization)
  Sender: FDA-Public Use
  Company Number: JP-MERCK-0607USA04744

PATIENT
  Age: 56 Year
  Sex: Female

DRUGS (4)
  1. FOSAMAX [Suspect]
     Indication: OSTEOPOROSIS
     Route: 048
     Dates: start: 20060609, end: 20060719
  2. TAKEPRON [Suspect]
     Indication: GASTRIC ULCER
     Route: 048
     Dates: start: 20060609, end: 20060719
  3. BAKTAR [Suspect]
     Indication: PNEUMOCYSTIS JIROVECI PNEUMONIA
     Route: 048
     Dates: start: 20060609, end: 20060719
  4. PREDNISOLONE [Suspect]
     Indication: INTERSTITIAL LUNG DISEASE
     Route: 048
     Dates: start: 20060609

REACTIONS (1)
  - AGRANULOCYTOSIS [None]
